FAERS Safety Report 20424090 (Version 1)
Quarter: 2022Q1

REPORT INFORMATION
  Report Type: Report from Study
  Country: US (occurrence: US)
  Receive Date: 20220203
  Receipt Date: 20220203
  Transmission Date: 20220423
  Serious: Yes (Death)
  Sender: FDA-Public Use
  Company Number: US-EXELIXIS-CABO-21039889

PATIENT
  Sex: Male

DRUGS (19)
  1. CABOMETYX [Suspect]
     Active Substance: CABOZANTINIB S-MALATE
     Indication: Renal cell carcinoma
     Dosage: 40 MG, QD
     Route: 048
     Dates: start: 202009
  2. CABOMETYX [Suspect]
     Active Substance: CABOZANTINIB S-MALATE
     Dosage: 40 MG, QD
     Route: 048
     Dates: start: 20210318, end: 20210517
  3. CABOMETYX [Suspect]
     Active Substance: CABOZANTINIB S-MALATE
     Dosage: 40 MG, QD
     Route: 048
     Dates: end: 20210712
  4. OPDIVO [Concomitant]
     Active Substance: NIVOLUMAB
     Dosage: UNK
  5. AMLODIPINE [Concomitant]
     Active Substance: AMLODIPINE BESYLATE
  6. BASAGLAR KWIKPEN [Concomitant]
     Active Substance: INSULIN GLARGINE
  7. CYCLOBENZAPRINE [Concomitant]
     Active Substance: CYCLOBENZAPRINE
  8. DEXAMETHASONE [Concomitant]
     Active Substance: DEXAMETHASONE
  9. DIFLUCAN [Concomitant]
     Active Substance: FLUCONAZOLE
  10. GLIMEPIRIDE [Concomitant]
     Active Substance: GLIMEPIRIDE
  11. HYDROCODONE [Concomitant]
     Active Substance: HYDROCODONE
  12. ACETAMINOPHEN [Concomitant]
     Active Substance: ACETAMINOPHEN
  13. INLYTA [Concomitant]
     Active Substance: AXITINIB
  14. LOSARTAN [Concomitant]
     Active Substance: LOSARTAN
  15. DIPHENHYDRAMINE HYDROCHLORIDE\LIDOCAINE HYDROCHLORIDE\NYSTATIN [Concomitant]
     Active Substance: DIPHENHYDRAMINE HYDROCHLORIDE\LIDOCAINE HYDROCHLORIDE\NYSTATIN
  16. METFORMIN [Concomitant]
     Active Substance: METFORMIN HYDROCHLORIDE
  17. NOVOLOG [Concomitant]
     Active Substance: INSULIN ASPART
  18. PRAVASTATIN [Concomitant]
     Active Substance: PRAVASTATIN
  19. PREDNISONE [Concomitant]
     Active Substance: PREDNISONE

REACTIONS (6)
  - Malignant neoplasm progression [Fatal]
  - Tongue ulceration [Unknown]
  - Toxicity to various agents [Unknown]
  - Stomatitis [Recovered/Resolved]
  - Palmar-plantar erythrodysaesthesia syndrome [Recovering/Resolving]
  - Hypertension [Unknown]
